FAERS Safety Report 6070472-8 (Version None)
Quarter: 2009Q1

REPORT INFORMATION
  Report Type: 
  Country: None (occurrence: None)
  Receive Date: 20090209
  Receipt Date: 20090126
  Transmission Date: 20090719
  Serious: Yes (Hospitalization)
  Sender: FDA-Public Use
  Company Number: SE-GENENTECH-276511

PATIENT
  Age: 62 Year
  Sex: Female

DRUGS (4)
  1. MABTHERA [Suspect]
     Indication: RHEUMATOID ARTHRITIS
     Dosage: UNK
     Route: 065
     Dates: start: 20080701
  2. MABTHERA [Suspect]
     Dosage: UNK
     Route: 065
     Dates: start: 20090119
  3. METHOTREXATE [Concomitant]
     Indication: DRUG USE FOR UNKNOWN INDICATION
  4. FRAGMIN [Concomitant]
     Indication: THROMBOSIS PROPHYLAXIS
     Dosage: UNK
     Dates: start: 20081212, end: 20081224

REACTIONS (1)
  - DEEP VEIN THROMBOSIS [None]
